FAERS Safety Report 9665625 (Version 1)
Quarter: 2013Q4

REPORT INFORMATION
  Report Type: Spontaneous
  Country: US (occurrence: None)
  Receive Date: 20131031
  Receipt Date: 20131031
  Transmission Date: 20140711
  Serious: Yes (Hospitalization)
  Sender: FDA-Public Use
  Company Number: None

PATIENT
  Age: 48 Year
  Sex: Male
  Weight: 99.8 kg

DRUGS (2)
  1. LISINOPRIL [Suspect]
     Indication: HYPERTENSION
     Route: 048
     Dates: start: 20130506, end: 20130923
  2. AMLODIPINE [Suspect]
     Route: 048
     Dates: start: 20130506, end: 20130923

REACTIONS (2)
  - Angioedema [None]
  - Drug hypersensitivity [None]
